FAERS Safety Report 7655016-9 (Version None)
Quarter: 2011Q3

REPORT INFORMATION
  Report Type: 
  Country: None (occurrence: None)
  Receive Date: 20110728
  Receipt Date: 20110715
  Transmission Date: 20111222
  Serious: Yes (Other)
  Sender: FDA-Public Use
  Company Number: 2011AP001504

PATIENT
  Age: 61 Year
  Sex: Female

DRUGS (9)
  1. ASPIRIN [Concomitant]
  2. TARAXACUM OFFICINALE (TARAXACUM OFFICINALE) [Concomitant]
  3. BISOPROLOL FUMARATE [Suspect]
     Indication: PRODUCT USED FOR UNKNOWN INDICATION
     Dates: start: 20101001, end: 20101006
  4. BENDROFLUMETHIAZIDE (BENDROFLUMETHIAZIDE) [Concomitant]
  5. SIMVASTATIN [Concomitant]
  6. LOSARTAN POTASSIUM [Concomitant]
  7. INDAPAMIDE [Concomitant]
  8. RAMIPRIL [Suspect]
     Indication: BLOOD PRESSURE
     Dosage: 2.5 MG
     Dates: start: 20101118
  9. DILTIAZEM [Suspect]
     Indication: PRODUCT USED FOR UNKNOWN INDICATION
     Dosage: 200 MG;QD
     Dates: start: 20101006

REACTIONS (3)
  - BLOOD PRESSURE INCREASED [None]
  - VISION BLURRED [None]
  - VISUAL IMPAIRMENT [None]
